FAERS Safety Report 9682317 (Version 1)
Quarter: 2013Q4

REPORT INFORMATION
  Report Type: Spontaneous
  Country: US (occurrence: US)
  Receive Date: 20131112
  Receipt Date: 20131112
  Transmission Date: 20140711
  Serious: Yes (Death)
  Sender: FDA-Public Use
  Company Number: US-BIOGENIDEC-2013BI108880

PATIENT
  Age: 56 Year
  Sex: Female

DRUGS (6)
  1. AVONEX [Suspect]
     Indication: MULTIPLE SCLEROSIS
     Route: 030
     Dates: start: 20110331, end: 20131003
  2. AMPYRA [Concomitant]
  3. VALIUM [Concomitant]
  4. WELLBUTRIN [Concomitant]
  5. VICODIN [Concomitant]
  6. LYRICA [Concomitant]

REACTIONS (1)
  - Death [Fatal]
